FAERS Safety Report 5920955-3 (Version None)
Quarter: 2008Q4

REPORT INFORMATION
  Report Type: 
  Country: None (occurrence: None)
  Receive Date: 20081015
  Receipt Date: 20081015
  Transmission Date: 20090506
  Serious: No
  Sender: FDA-Public Use
  Company Number: None

PATIENT
  Age: 42 Year
  Sex: Male
  Weight: 63.5036 kg

DRUGS (1)
  1. MCKESSON MEDI-PAK EVERFRESH MCKESSON MEDICAL-SURGICAL [Suspect]
     Indication: DENTAL DISORDER PROPHYLAXIS
     Dosage: DAB, ONE USE
     Dates: start: 20081013, end: 20081013

REACTIONS (3)
  - DYSGEUSIA [None]
  - PRODUCT QUALITY ISSUE [None]
  - THROAT IRRITATION [None]
